FAERS Safety Report 9319319 (Version 1)
Quarter: 2013Q2

REPORT INFORMATION
  Report Type: Report from Study
  Country: US (occurrence: US)
  Receive Date: 20130530
  Receipt Date: 20130530
  Transmission Date: 20140414
  Serious: Yes (Other)
  Sender: FDA-Public Use
  Company Number: US-JNJFOC-20130515957

PATIENT
  Sex: Male
  Weight: 12.25 kg

DRUGS (1)
  1. REMICADE [Suspect]
     Indication: CROHN^S DISEASE
     Route: 042

REACTIONS (3)
  - Infectious mononucleosis [Unknown]
  - Pneumonia [Unknown]
  - Crohn^s disease [Unknown]
